FAERS Safety Report 6992162-7 (Version None)
Quarter: 2010Q3

REPORT INFORMATION
  Report Type: 
  Country: None (occurrence: None)
  Receive Date: 20100917
  Receipt Date: 20100913
  Transmission Date: 20110219
  Serious: Yes (Hospitalization)
  Sender: FDA-Public Use
  Company Number: US-BAYER-201019932BCC

PATIENT
  Age: 77 Year
  Sex: Male

DRUGS (3)
  1. ALEVE (CAPLET) [Suspect]
     Indication: ABDOMINAL PAIN
     Route: 048
     Dates: start: 20100613, end: 20100627
  2. DASATINIB OR PLACEBO [Suspect]
     Indication: PROSTATE CANCER
     Dosage: TOTAL DAILY DOSE: 1 DF  UNIT DOSE: 1 DF
     Route: 048
     Dates: start: 20100609, end: 20100627
  3. NEXIUM [Concomitant]
     Route: 065
     Dates: start: 20100630

REACTIONS (4)
  - ABDOMINAL PAIN [None]
  - ANAEMIA [None]
  - DUODENAL ULCER HAEMORRHAGE [None]
  - MELAENA [None]
